FAERS Safety Report 25623090 (Version 2)
Quarter: 2025Q4

REPORT INFORMATION
  Report Type: Other
  Country: KR (occurrence: KR)
  Receive Date: 20250730
  Receipt Date: 20251022
  Transmission Date: 20260117
  Serious: Yes (Death, Hospitalization)
  Sender: DEXCEL LTD.
  Company Number: KR-DEXPHARM-2025-3965

PATIENT
  Age: 48 Year
  Sex: Male

DRUGS (10)
  1. METHOTREXATE [Concomitant]
     Active Substance: METHOTREXATE
  2. PREDNISOLONE [Concomitant]
     Active Substance: PREDNISOLONE
  3. PREGABALIN [Concomitant]
     Active Substance: PREGABALIN
  4. AMLODIPINE\VALSARTAN [Concomitant]
     Active Substance: AMLODIPINE\VALSARTAN
     Dosage: AMLODIPINE/VALSARTAN 5/80MG
  5. AMLODIPINE\VALSARTAN [Concomitant]
     Active Substance: AMLODIPINE\VALSARTAN
     Dosage: AMLODIPINE/VALSARTAN 5/80MG
  6. ACETAMINOPHEN\TRAMADOL [Concomitant]
     Active Substance: ACETAMINOPHEN\TRAMADOL
     Dosage: ACETAMINOPHEN/TRAMADOL  650/75 MG
  7. ACETAMINOPHEN\TRAMADOL [Concomitant]
     Active Substance: ACETAMINOPHEN\TRAMADOL
     Dosage: ACETAMINOPHEN/TRAMADOL 650/75 MG
  8. NAPROXEN [Concomitant]
     Active Substance: NAPROXEN
  9. SECUKINUMAB [Concomitant]
     Active Substance: SECUKINUMAB
  10. TOFACITINIB [Suspect]
     Active Substance: TOFACITINIB
     Indication: Ankylosing spondylitis
     Dosage: TOFACITINIB 5 MG BID PER DAY

REACTIONS (3)
  - Hyperammonaemic encephalopathy [Fatal]
  - Status epilepticus [Recovered/Resolved]
  - Brain death [Fatal]
